FAERS Safety Report 14140435 (Version 1)
Quarter: 2017Q4

REPORT INFORMATION
  Report Type: Spontaneous
  Country: US (occurrence: US)
  Receive Date: 20171030
  Receipt Date: 20171030
  Transmission Date: 20180321
  Serious: Yes (Death, Hospitalization)
  Sender: FDA-Public Use
  Company Number: US-JNJFOC-20171009330

PATIENT
  Age: 55 Year
  Sex: Male
  Weight: 83.92 kg

DRUGS (1)
  1. YONDELIS [Suspect]
     Active Substance: TRABECTEDIN
     Indication: NON-HODGKIN^S LYMPHOMA
     Route: 042
     Dates: start: 20170706, end: 20170811

REACTIONS (2)
  - Platelet count increased [Unknown]
  - Malignant neoplasm progression [Fatal]

NARRATIVE: CASE EVENT DATE: 201707
